FAERS Safety Report 6426867-3 (Version None)
Quarter: 2009Q4

REPORT INFORMATION
  Report Type: 
  Country: None (occurrence: None)
  Receive Date: 20091104
  Receipt Date: 20091027
  Transmission Date: 20100525
  Serious: Yes (Hospitalization)
  Sender: FDA-Public Use
  Company Number: JP-BAYER-200913560BYL

PATIENT
  Age: 59 Year
  Sex: Male
  Weight: 65 kg

DRUGS (6)
  1. NEXAVAR [Suspect]
     Indication: HEPATIC NEOPLASM MALIGNANT
     Dosage: TOTAL DAILY DOSE: 800 MG  UNIT DOSE: 200 MG
     Route: 048
     Dates: start: 20090827, end: 20090915
  2. NEXAVAR [Suspect]
     Dosage: TOTAL DAILY DOSE: 800 MG  UNIT DOSE: 200 MG
     Route: 048
     Dates: start: 20090930, end: 20091013
  3. DIOVAN [Concomitant]
     Indication: HYPERTENSION
     Dosage: TOTAL DAILY DOSE: 160 MG
     Route: 048
     Dates: start: 20060101
  4. AMLODIPINE [Concomitant]
     Indication: HYPERTENSION
     Dosage: TOTAL DAILY DOSE: 5 MG
     Route: 048
     Dates: start: 20060101
  5. URSO 250 [Concomitant]
     Indication: HEPATITIS C
     Dosage: TOTAL DAILY DOSE: 600 MG
     Route: 048
  6. AMARYL [Concomitant]
     Indication: DIABETES MELLITUS
     Dosage: TOTAL DAILY DOSE: 3 MG
     Route: 048
     Dates: start: 20020101

REACTIONS (4)
  - DECREASED APPETITE [None]
  - HYPERTENSION [None]
  - PROTEINURIA [None]
  - RENAL DISORDER [None]
